FAERS Safety Report 8153056-7 (Version None)
Quarter: 2012Q1

REPORT INFORMATION
  Report Type: 
  Country: None (occurrence: None)
  Receive Date: 20120221
  Receipt Date: 20120210
  Transmission Date: 20120608
  Serious: Yes (Other)
  Sender: FDA-Public Use
  Company Number: NZ-PFIZER INC-2012038415

PATIENT
  Age: 46 Year
  Sex: Male

DRUGS (3)
  1. VARENICLINE TARTRATE [Suspect]
     Indication: SMOKING CESSATION THERAPY
  2. ATORVASTATIN [Concomitant]
  3. ACETYLSALICYLIC ACID [Concomitant]

REACTIONS (1)
  - MOUTH HAEMORRHAGE [None]
